FAERS Safety Report 9270836 (Version 1)
Quarter: 2013Q2

REPORT INFORMATION
  Report Type: Spontaneous
  Country: US (occurrence: US)
  Receive Date: 20130503
  Receipt Date: 20130503
  Transmission Date: 20140414
  Serious: No
  Sender: FDA-Public Use
  Company Number: US-ASTRAZENECA-2013SE27842

PATIENT
  Age: 75 Year
  Sex: Female
  Weight: 81.6 kg

DRUGS (6)
  1. ARIMIDEX [Suspect]
     Indication: BREAST CANCER
     Route: 048
     Dates: start: 201202
  2. ARIMIDEX [Suspect]
     Indication: BREAST CANCER
     Dosage: GENERIC
     Route: 048
  3. SYNTHROID [Concomitant]
     Indication: THYROID DISORDER
     Dosage: UNKNOWN UNK
  4. CALCIUM [Concomitant]
     Dosage: UNKNOWN UNK
  5. VITAMIN B [Concomitant]
     Dosage: UNKNOWN UNK
  6. VITAMIN D [Concomitant]
     Dosage: UNKNOWN UNK

REACTIONS (4)
  - Chills [Not Recovered/Not Resolved]
  - Adverse event [Not Recovered/Not Resolved]
  - Hot flush [Not Recovered/Not Resolved]
  - Asthenia [Not Recovered/Not Resolved]
